FAERS Safety Report 7593429-4 (Version None)
Quarter: 2011Q3

REPORT INFORMATION
  Report Type: 
  Country: None (occurrence: None)
  Receive Date: 20110706
  Receipt Date: 20110628
  Transmission Date: 20111222
  Serious: Yes (Hospitalization)
  Sender: FDA-Public Use
  Company Number: US-MERCK-1106USA02214

PATIENT
  Age: 81 Year
  Sex: Female

DRUGS (6)
  1. OMEGA-3 MARINE TRIGLYCERIDES [Concomitant]
     Route: 065
  2. RALOXIFENE HYDROCHLORIDE [Concomitant]
     Indication: OSTEOPOROSIS
     Route: 065
  3. ERGOCALCIFEROL [Concomitant]
     Route: 065
  4. FOSAMAX [Suspect]
     Indication: OSTEOPENIA
     Route: 048
     Dates: start: 20010129, end: 20091011
  5. FOSAMAX [Suspect]
     Indication: OSTEOPOROSIS
     Route: 048
     Dates: start: 20010129, end: 20091011
  6. CALCIUM (UNSPECIFIED) [Concomitant]
     Route: 065

REACTIONS (10)
  - TOOTH LOSS [None]
  - BURNING SENSATION [None]
  - ORAL DISORDER [None]
  - PELVIC PAIN [None]
  - VITAMIN D DEFICIENCY [None]
  - OSTEOGENESIS IMPERFECTA [None]
  - FEMUR FRACTURE [None]
  - CALCIUM DEFICIENCY [None]
  - HYPERTENSION [None]
  - TOOTH DISORDER [None]
